FAERS Safety Report 6215968-0 (Version None)
Quarter: 2009Q2

REPORT INFORMATION
  Report Type: 
  Country: None (occurrence: None)
  Receive Date: 20090603
  Receipt Date: 20090603
  Transmission Date: 20091009
  Serious: Yes (Life-Threatening, Hospitalization, Disabling, Other)
  Sender: FDA-Public Use
  Company Number: None

PATIENT
  Sex: Female
  Weight: 39.9165 kg

DRUGS (4)
  1. AZATHIOPRINE [Suspect]
     Indication: RENAL TRANSPLANT
     Dosage: 50MG 1 DAY, LIFETIME RXS
     Dates: start: 19741201, end: 20090501
  2. METHYLPREDNISOLONE 4MG TAB [Suspect]
     Indication: RENAL TRANSPLANT
     Dosage: 4 MG 1 DAY
     Dates: start: 19741201, end: 20090501
  3. PREMARIN [Concomitant]
  4. MIACALCIN SPRAY [Concomitant]

REACTIONS (22)
  - ADRENAL SUPPRESSION [None]
  - ANXIETY [None]
  - CHEST PAIN [None]
  - COLITIS [None]
  - COLON NEOPLASM [None]
  - COMPLICATIONS OF TRANSPLANTED KIDNEY [None]
  - DIVERTICULITIS [None]
  - FATIGUE [None]
  - GASTROOESOPHAGEAL REFLUX DISEASE [None]
  - HEPATIC NEOPLASM [None]
  - INCREASED TENDENCY TO BRUISE [None]
  - INFECTION [None]
  - IRRITABLE BOWEL SYNDROME [None]
  - OSTEOPOROSIS [None]
  - PEPTIC ULCER [None]
  - PNEUMONIA [None]
  - RENAL CYST [None]
  - SALIVARY GLAND NEOPLASM [None]
  - SKIN ATROPHY [None]
  - SKIN LACERATION [None]
  - SQUAMOUS CELL CARCINOMA OF SKIN [None]
  - UTERINE LEIOMYOMA [None]
